FAERS Safety Report 5072365-1 (Version None)
Quarter: 2006Q3

REPORT INFORMATION
  Report Type: 
  Country: None (occurrence: None)
  Receive Date: 20060710
  Receipt Date: 20060217
  Transmission Date: 20061208
  Serious: Yes (Hospitalization)
  Sender: FDA-Public Use
  Company Number: PHEH2005US11103

PATIENT
  Age: 69 Year
  Sex: Male

DRUGS (12)
  1. GLEEVEC [Suspect]
     Indication: CHRONIC MYELOID LEUKAEMIA
     Dosage: 400 MG, QD, ORAL
     Route: 048
     Dates: start: 20050909, end: 20051001
  2. LEVAQUIN [Concomitant]
  3. INSULIN [Concomitant]
  4. LASIX [Concomitant]
  5. LEVOXYL [Concomitant]
  6. AMIODARONE (AMIODARONE) [Concomitant]
  7. LANOXIN [Concomitant]
  8. DIOVAN [Concomitant]
  9. PLAVIX [Concomitant]
  10. LESCOL [Concomitant]
  11. NEXIUM [Concomitant]
  12. IRON (IRON) [Concomitant]

REACTIONS (5)
  - DIALYSIS [None]
  - MENTAL STATUS CHANGES [None]
  - NAUSEA [None]
  - RENAL FAILURE ACUTE [None]
  - VOMITING [None]
